FAERS Safety Report 8601752-7 (Version None)
Quarter: 2012Q3

REPORT INFORMATION
  Report Type: 
  Country: None (occurrence: None)
  Receive Date: 20120817
  Receipt Date: 20120328
  Transmission Date: 20120928
  Serious: Yes (Disabling)
  Sender: FDA-Public Use
  Company Number: US-BRISTOL-MYERS SQUIBB COMPANY-16443889

PATIENT
  Age: 69 Year
  Sex: Male

DRUGS (1)
  1. SPRYCEL [Suspect]
     Indication: CHRONIC MYELOID LEUKAEMIA
     Dosage: 50MG FROM 23-FEB-2012 TO 26-FEB-2012 (4 DAYS).
     Route: 048
     Dates: start: 20070101, end: 20120226

REACTIONS (2)
  - TENDONITIS [None]
  - PLEURAL EFFUSION [None]
